FAERS Safety Report 6929814-0 (Version None)
Quarter: 2010Q3

REPORT INFORMATION
  Report Type: 
  Country: None (occurrence: None)
  Receive Date: 20100818
  Receipt Date: 20100804
  Transmission Date: 20110219
  Serious: Yes (Other)
  Sender: FDA-Public Use
  Company Number: PHHY2010US51865

PATIENT
  Sex: Male

DRUGS (20)
  1. GLEEVEC [Suspect]
     Dosage: 400 MG, UNK
  2. INFLUENCE [Concomitant]
  3. PRINZIDE [Concomitant]
  4. MUCINEX [Concomitant]
     Dosage: 400 MG,
  5. DIAZEPAM [Concomitant]
     Dosage: 10 MG, UNK
  6. ASPIRIN [Concomitant]
     Dosage: 5 MG, ONCE A DAY
  7. VITAMIN B-12 [Concomitant]
     Dosage: 1000 UG, UNK
  8. REMERON [Concomitant]
     Dosage: 45 MG, UNK
  9. DOXAZOSIN [Concomitant]
     Dosage: 2 MG, UNK
  10. SYNTHROID [Concomitant]
     Dosage: 200 MG, UNK
  11. VENTOLIN [Concomitant]
  12. STRIVA [Concomitant]
  13. NORCO [Concomitant]
     Indication: PAIN
     Dosage: 10/325 EVERY 8 HOURS
  14. FENTANYL [Concomitant]
     Dosage: 150 MG, EVERY 3 DAY
  15. INSULIN [Concomitant]
  16. DONNATAL [Concomitant]
     Dosage: 3-6 TEASPOONS THRICE/ DAY
  17. ANTIBIOTICS [Concomitant]
  18. BENEFIBER [Concomitant]
  19. COLON HEALTH [Concomitant]
  20. OXYGEN THERAPY [Concomitant]

REACTIONS (8)
  - ABDOMINAL DISCOMFORT [None]
  - ABDOMINAL PAIN [None]
  - BACK PAIN [None]
  - CHEST PAIN [None]
  - EPISTAXIS [None]
  - FEELING ABNORMAL [None]
  - NAUSEA [None]
  - PULMONARY CONGESTION [None]
